FAERS Safety Report 9303020 (Version 2)
Quarter: 2013Q3

REPORT INFORMATION
  Report Type: Report from Study
  Country: JP (occurrence: JP)
  Receive Date: 20130522
  Receipt Date: 20130912
  Transmission Date: 20140515
  Serious: Yes (Other)
  Sender: FDA-Public Use
  Company Number: JP-VERTEX PHARMACEUTICALS INC-AE-2012-011504

PATIENT
  Age: 61 Year
  Sex: Female

DRUGS (15)
  1. VX-950 (TELAPREVIR) [Suspect]
     Indication: CHRONIC HEPATITIS C
     Dosage: UNK
     Dates: start: 20120613
  2. PEGINTRON [Suspect]
     Indication: CHRONIC HEPATITIS C
     Dosage: 1.5 ?G/KG,QW
     Route: 058
     Dates: start: 20120613, end: 20120702
  3. PEGINTRON [Suspect]
     Dosage: 1 ?G/KG,QW
     Route: 058
     Dates: start: 20120709, end: 20120717
  4. PEGINTRON [Suspect]
     Dosage: 1.5 ?G/KG, QW
     Route: 058
     Dates: start: 20120723
  5. REBETOL [Suspect]
     Dosage: 400 MG, QD
     Route: 048
     Dates: start: 20120613, end: 20120701
  6. REBETOL [Suspect]
     Dosage: 200 MG, QD
     Route: 048
     Dates: start: 20120702
  7. SELBEX [Concomitant]
     Route: 048
     Dates: end: 20120722
  8. LIPACREON [Concomitant]
     Dosage: 1800 MG, QD
     Route: 048
  9. TAKEPRON [Concomitant]
     Dosage: 30 MG, QD
     Route: 048
  10. LOXONIN [Concomitant]
     Dosage: 60 MG, QD
     Route: 048
     Dates: start: 20120613, end: 20120625
  11. MUCOSTA [Concomitant]
     Dosage: 100 MG, QD
     Route: 048
     Dates: start: 20120613, end: 20120625
  12. EVAMYL [Concomitant]
     Dosage: 1 MG, PRN
     Route: 048
     Dates: start: 20120613, end: 20120708
  13. ZYLORIC [Concomitant]
     Dosage: 200 MG, QD
     Route: 048
     Dates: start: 20120615
  14. GASMOTIN [Concomitant]
     Dosage: 15 MG, QD
     Route: 048
     Dates: start: 20120621
  15. FOIPAN [Concomitant]
     Dosage: 600 MG, QD
     Route: 048

REACTIONS (1)
  - Neutrophil count decreased [Recovered/Resolved]
